FAERS Safety Report 4615409-0 (Version None)
Quarter: 2005Q2

REPORT INFORMATION
  Report Type: 
  Country: None (occurrence: None)
  Receive Date: 20050311
  Receipt Date: 20041101
  Transmission Date: 20051028
  Serious: No
  Sender: FDA-Public Use
  Company Number: 2004BP-07074BP

PATIENT
  Age: 63 Year
  Sex: Male

DRUGS (6)
  1. SPIRIVA [Suspect]
     Indication: CHRONIC OBSTRUCTIVE PULMONARY DISEASE
     Dosage: 18 MCG (18 MCG, OD), IH
     Route: 055
     Dates: start: 20040618
  2. ALBUTEROL [Concomitant]
  3. COMBIVENT [Concomitant]
  4. PEPCID [Concomitant]
  5. ACCUPRIL [Concomitant]
  6. CARDIZEM CD [Concomitant]

REACTIONS (1)
  - THERAPEUTIC RESPONSE DECREASED [None]
